FAERS Safety Report 9555342 (Version 1)
Quarter: 2013Q3

REPORT INFORMATION
  Report Type: Spontaneous
  Country: US (occurrence: None)
  Receive Date: 20130816
  Receipt Date: 20130816
  Transmission Date: 20140515
  Serious: No
  Sender: FDA-Public Use
  Company Number: US-011857

PATIENT
  Age: 46 Year
  Sex: Female
  Weight: 54.43 kg

DRUGS (16)
  1. PICO-SALAX (NOT SPECIFIED) [Suspect]
     Indication: BOWEL PREPARATION
     Dosage: ONE PACKET MIXED IN 8OZ OF WATER AT 2PM AND ONE PACKET IN 8OZ WATER AT 7PM?
     Dates: start: 20130523, end: 20130523
  2. PREDNISONE [Concomitant]
  3. CELLCEPT [Concomitant]
  4. BACTRIM [Concomitant]
  5. LEVOTHYROXINE [Concomitant]
  6. CALCITONIN [Concomitant]
  7. CYMBALTA [Concomitant]
  8. OXYCODONE [Concomitant]
  9. OXYCONTIN [Concomitant]
  10. PROGRAF [Concomitant]
  11. ASA [Concomitant]
  12. PRISTIQ [Concomitant]
  13. MEGACE [Concomitant]
  14. SIROLIMUS [Concomitant]
  15. OMEPRAZOLE [Concomitant]
  16. VICODIN [Concomitant]

REACTIONS (1)
  - Drug effect decreased [None]
